FAERS Safety Report 24864023 (Version 1)
Quarter: 2025Q1

REPORT INFORMATION
  Report Type: Spontaneous
  Country: US (occurrence: US)
  Receive Date: 20250120
  Receipt Date: 20250120
  Transmission Date: 20250408
  Serious: No
  Sender: CALLIDITAS THERAPEUTICS AB
  Company Number: US-Calliditas-2024CAL02853

PATIENT
  Age: 55 Year
  Sex: Female

DRUGS (1)
  1. TARPEYO [Suspect]
     Active Substance: BUDESONIDE
     Indication: IgA nephropathy
     Route: 048
     Dates: start: 20241113

REACTIONS (5)
  - Sleep disorder [Not Recovered/Not Resolved]
  - Epistaxis [Recovering/Resolving]
  - Swelling face [Not Recovered/Not Resolved]
  - Pigmentation lip [Not Recovered/Not Resolved]
  - Abdominal pain upper [Unknown]

NARRATIVE: CASE EVENT DATE: 20241201
